FAERS Safety Report 6269897-7 (Version None)
Quarter: 2009Q3

REPORT INFORMATION
  Report Type: 
  Country: None (occurrence: None)
  Receive Date: 20090716
  Receipt Date: 20070511
  Transmission Date: 20100115
  Serious: Yes (Hospitalization, Other)
  Sender: FDA-Public Use
  Company Number: US-ASTRAZENECA-2006UW27907

PATIENT
  Age: 50 Year
  Sex: Female
  Weight: 77.1 kg

DRUGS (10)
  1. SEROQUEL [Suspect]
     Indication: INSOMNIA
     Route: 048
     Dates: start: 20040729
  2. GEODON [Concomitant]
  3. RISPERDAL [Concomitant]
  4. OLANZAPINE [Concomitant]
  5. AVANDIA [Concomitant]
     Dates: start: 20041129
  6. GLYBURIDE [Concomitant]
     Dates: start: 20020129
  7. CELEBREX [Concomitant]
     Dates: start: 20020129
  8. TEMAZEPAM [Concomitant]
     Dates: start: 20060901
  9. SIMVASTATIN [Concomitant]
     Dates: start: 20060901
  10. TRAMADOL HCL [Concomitant]
     Dates: start: 20061103

REACTIONS (5)
  - BLOOD CHOLESTEROL INCREASED [None]
  - CHEST PAIN [None]
  - DIABETES MELLITUS [None]
  - DIABETIC NEUROPATHY [None]
  - TYPE 2 DIABETES MELLITUS [None]
